FAERS Safety Report 10703781 (Version 6)
Quarter: 2020Q1

REPORT INFORMATION
  Report Type: Spontaneous
  Country: US (occurrence: US)
  Receive Date: 20150112
  Receipt Date: 20200219
  Transmission Date: 20200409
  Serious: Yes (Hospitalization, Other)
  Sender: FDA-Public Use
  Company Number: US-PFIZER INC-2015011616

PATIENT
  Age: 69 Year
  Sex: Female
  Weight: 73 kg

DRUGS (6)
  1. LYRICA [Suspect]
     Active Substance: PREGABALIN
     Dosage: 200 MG, 2X/DAY (2-100MG CAPSULES )
  2. LYRICA [Suspect]
     Active Substance: PREGABALIN
     Indication: FIBROMYALGIA
     Dosage: 75 MG, ONCE A DAY
     Route: 048
     Dates: start: 2006
  3. LYRICA [Suspect]
     Active Substance: PREGABALIN
     Dosage: 100 MG, UNK
  4. LYRICA [Suspect]
     Active Substance: PREGABALIN
     Dosage: 225 MG, DAILY (3-75MG CAPSULES)
  5. LYRICA [Suspect]
     Active Substance: PREGABALIN
     Dosage: 300 MG, UNK (3-100MGS)
  6. LYRICA [Suspect]
     Active Substance: PREGABALIN
     Dosage: 50 MG, UNK

REACTIONS (10)
  - Intentional product misuse [Unknown]
  - Ankle fracture [Unknown]
  - Loss of consciousness [Unknown]
  - Pain [Unknown]
  - Blood pressure increased [Unknown]
  - Hip fracture [Unknown]
  - Hypotension [Unknown]
  - Joint swelling [Unknown]
  - Hypoacusis [Unknown]
  - Prescription drug used without a prescription [Unknown]

NARRATIVE: CASE EVENT DATE: 2016
